FAERS Safety Report 7602328-0 (Version None)
Quarter: 2011Q3

REPORT INFORMATION
  Report Type: 
  Country: None (occurrence: None)
  Receive Date: 20110712
  Receipt Date: 20110701
  Transmission Date: 20111222
  Serious: Yes (Hospitalization)
  Sender: FDA-Public Use
  Company Number: FR-BIOGENIDEC-2011BI004213

PATIENT
  Age: 49 Year
  Sex: Female

DRUGS (4)
  1. PROANTHOCYANIDINE [Concomitant]
     Indication: OEDEMA
  2. CHONDROITIN [Concomitant]
     Indication: OSTEOARTHRITIS
  3. TYSABRI [Suspect]
     Indication: MULTIPLE SCLEROSIS
     Route: 042
     Dates: start: 20080331, end: 20101129
  4. CLONAZEPAM [Concomitant]

REACTIONS (1)
  - INTERSTITIAL LUNG DISEASE [None]
